FAERS Safety Report 13603202 (Version 4)
Quarter: 2017Q2

REPORT INFORMATION
  Report Type: Spontaneous
  Country: US (occurrence: US)
  Receive Date: 20170601
  Receipt Date: 20170622
  Transmission Date: 20170830
  Serious: Yes (Death, Hospitalization)
  Sender: FDA-Public Use
  Company Number: US-ACTELION-A-NJ2017-154663

PATIENT
  Age: 74 Year
  Sex: Female
  Weight: 48.53 kg

DRUGS (3)
  1. UPTRAVI [Suspect]
     Active Substance: SELEXIPAG
     Indication: PULMONARY ARTERIAL HYPERTENSION
     Dosage: 1600 MCG, BID
     Route: 048
  2. REMODULIN [Concomitant]
     Active Substance: TREPROSTINIL
  3. OFEV [Concomitant]
     Active Substance: NINTEDANIB

REACTIONS (3)
  - Intestinal perforation [Unknown]
  - Intestinal operation [Unknown]
  - Cardiac failure [Fatal]
